FAERS Safety Report 21300470 (Version 3)
Quarter: 2022Q3

REPORT INFORMATION
  Report Type: Spontaneous
  Country: DE (occurrence: DE)
  Receive Date: 20220907
  Receipt Date: 20220914
  Transmission Date: 20221027
  Serious: Yes (Hospitalization, Other)
  Sender: FDA-Public Use
  Company Number: DE-MYLANLABS-2022M1006609

PATIENT
  Sex: Female

DRUGS (14)
  1. KEPPRA [Suspect]
     Active Substance: LEVETIRACETAM
     Indication: Axial spondyloarthritis
     Dosage: DAILY DOSE: 1500MILLIGRAM
     Dates: start: 20200401
  2. ASPIRIN [Suspect]
     Active Substance: ASPIRIN
     Indication: Axial spondyloarthritis
     Dosage: DAILY DOSE: 100 MILLIGRAM
     Dates: start: 20210702
  3. ATORVASTATIN CALCIUM [Suspect]
     Active Substance: ATORVASTATIN CALCIUM
     Indication: Axial spondyloarthritis
     Dosage: 10 MILLIGRAM, UNK
     Dates: start: 20200101
  4. LEVOTHYROXINE [Suspect]
     Active Substance: LEVOTHYROXINE
     Indication: Axial spondyloarthritis
     Dosage: 0.05 MILLIGRAM
     Dates: start: 20200101
  5. FORMOTEROL FUMARATE [Suspect]
     Active Substance: FORMOTEROL FUMARATE
     Indication: Axial spondyloarthritis
     Dosage: DAILY DOSE: 0.02 MILLIGRAM
     Dates: start: 20200101
  6. FORMOTEROL FUMARATE [Suspect]
     Active Substance: FORMOTEROL FUMARATE
     Dosage: 0.02 MILLIGRAM
     Dates: start: 20200101
  7. FALITHROM [Suspect]
     Active Substance: PHENPROCOUMON
     Indication: Axial spondyloarthritis
     Dosage: UNK
     Dates: start: 20200101
  8. XARELTO [Suspect]
     Active Substance: RIVAROXABAN
     Indication: Axial spondyloarthritis
     Dosage: DAILY DOSE: 5 MILLIGRAM
     Dates: start: 20210702
  9. HULIO [Suspect]
     Active Substance: ADALIMUMAB-FKJP
     Indication: Axial spondyloarthritis
     Dosage: 40 MILLIGRAM, Q2W
     Dates: start: 20200225
  10. CELECOXIB [Suspect]
     Active Substance: CELECOXIB
     Indication: Axial spondyloarthritis
     Dosage: 400  MILLIGRAM
     Dates: start: 20200101, end: 20200324
  11. CELECOXIB [Suspect]
     Active Substance: CELECOXIB
     Dosage: 200 MILLIGRAM
     Dates: start: 20210320
  12. FORMOTEROL [Suspect]
     Active Substance: FORMOTEROL
     Indication: Axial spondyloarthritis
     Dosage: 0.02 MILLIGRAM
     Dates: start: 20200101
  13. TORSEMIDE [Suspect]
     Active Substance: TORSEMIDE
     Indication: Axial spondyloarthritis
     Dosage: DAILY DOSE: 2.5 MILLIGRAM
  14. TORSEMIDE [Suspect]
     Active Substance: TORSEMIDE
     Dosage: DAILY DOSE: 5 MILLIGRAM
     Dates: start: 20210518

REACTIONS (4)
  - Vascular graft occlusion [Not Recovered/Not Resolved]
  - Dry gangrene [Not Recovered/Not Resolved]
  - Vascular graft infection [Not Recovered/Not Resolved]
  - Product use in unapproved indication [Unknown]

NARRATIVE: CASE EVENT DATE: 20200401
